FAERS Safety Report 5421173-8 (Version None)
Quarter: 2007Q3

REPORT INFORMATION
  Report Type: 
  Country: None (occurrence: None)
  Receive Date: 20070719
  Receipt Date: 20070427
  Transmission Date: 20080115
  Serious: Yes (Other)
  Sender: FDA-Public Use
  Company Number: HQWYE904930APR07

PATIENT
  Age: 82 Year
  Sex: Male
  Weight: 81.72 kg

DRUGS (3)
  1. ADVIL PM [Suspect]
     Indication: INSOMNIA
     Dosage: 1 TABLET TWICE, ORAL
     Route: 048
     Dates: start: 20070417, end: 20070426
  2. MULTI-VITAMINS [Concomitant]
  3. ACETYLSALICYLIC ACID SRT [Concomitant]

REACTIONS (3)
  - APATHY [None]
  - ASTHENIA [None]
  - SOMNOLENCE [None]
